FAERS Safety Report 17314505 (Version 1)
Quarter: 2020Q1

REPORT INFORMATION
  Report Type: Spontaneous
  Country: US (occurrence: US)
  Receive Date: 20200124
  Receipt Date: 20200124
  Transmission Date: 20200409
  Serious: No
  Sender: FDA-Public Use
  Company Number: US-GLAXOSMITHKLINE-US2020AMR011993

PATIENT

DRUGS (1)
  1. RELVAR ELLIPTA INHALATION POWDER [Suspect]
     Active Substance: FLUTICASONE FUROATE\VILANTEROL TRIFENATATE
     Indication: PRODUCT USED FOR UNKNOWN INDICATION
     Dosage: UNK
     Route: 065

REACTIONS (6)
  - Throat tightness [Unknown]
  - Obstructive airways disorder [Unknown]
  - Throat irritation [Unknown]
  - Oral discomfort [Unknown]
  - Secretion discharge [Recovered/Resolved]
  - Cough [Unknown]
